FAERS Safety Report 5893572-1 (Version None)
Quarter: 2008Q3

REPORT INFORMATION
  Report Type: 
  Country: None (occurrence: None)
  Receive Date: 20080919
  Receipt Date: 20080917
  Transmission Date: 20090109
  Serious: Yes (Death)
  Sender: FDA-Public Use
  Company Number: 2005-07-1781

PATIENT
  Age: 68 Year
  Sex: Male
  Weight: 50 kg

DRUGS (5)
  1. PEG-INTRON [Suspect]
     Indication: HEPATITIS C
     Dosage: 80 MCG; QW; SC
     Route: 058
     Dates: start: 20050714, end: 20050721
  2. REBETOL [Suspect]
     Indication: HEPATITIS C
     Dosage: 600 MG; QD; PO
     Route: 048
     Dates: start: 20050714, end: 20050725
  3. ZOPICLONE [Concomitant]
  4. FAMOTIDINE [Concomitant]
  5. GASMOTIN [Concomitant]

REACTIONS (1)
  - SUBDURAL HAEMATOMA [None]
